FAERS Safety Report 7942214-X (Version None)
Quarter: 2011Q4

REPORT INFORMATION
  Report Type: 
  Country: None (occurrence: None)
  Receive Date: 20111128
  Receipt Date: 20111121
  Transmission Date: 20120403
  Serious: Yes (Other)
  Sender: FDA-Public Use
  Company Number: US-ELI_LILLY_AND_COMPANY-US201111006844

PATIENT
  Age: 60 Year
  Sex: Male

DRUGS (6)
  1. BENICAR [Concomitant]
     Dosage: 5 MG, UNK
  2. FISH OIL [Concomitant]
     Dosage: UNK, TID
  3. ASPIRIN [Concomitant]
     Dosage: 81 MG, UNK
  4. CRESTOR [Concomitant]
  5. EFFIENT [Suspect]
     Indication: STENT PLACEMENT
     Dosage: 10 MG, QD
     Dates: start: 20110112
  6. CARVEDILOL [Concomitant]
     Dosage: UNK, BID

REACTIONS (1)
  - EJECTION FRACTION DECREASED [None]
